FAERS Safety Report 16122102 (Version 1)
Quarter: 2019Q1

REPORT INFORMATION
  Report Type: Spontaneous
  Country: US (occurrence: US)
  Receive Date: 20190327
  Receipt Date: 20190327
  Transmission Date: 20190418
  Serious: No
  Sender: FDA-Public Use
  Company Number: US-PFIZER INC-2019119515

PATIENT
  Sex: Female

DRUGS (1)
  1. CHILDRENS ADVIL [Suspect]
     Active Substance: IBUPROFEN
     Indication: PAIN
     Dosage: UNK (1 DOSAGE CUP, BEFORE SHE GOES TO BED AT NIGHT AND SOMETIMES ANOTHER IN THE MORNING)

REACTIONS (2)
  - Skin ulcer [Unknown]
  - Drug effect incomplete [Unknown]
